FAERS Safety Report 4906674-0 (Version None)
Quarter: 2006Q1

REPORT INFORMATION
  Report Type: 
  Country: None (occurrence: None)
  Receive Date: 20060209
  Receipt Date: 20060117
  Transmission Date: 20060701
  Serious: Yes (Death)
  Sender: FDA-Public Use
  Company Number: 2006UW00833

PATIENT
  Age: 23684 Day
  Sex: Female
  Weight: 45.9 kg

DRUGS (1)
  1. IRESSA [Suspect]
     Indication: LUNG NEOPLASM MALIGNANT
     Route: 048
     Dates: start: 20040528, end: 20051217

REACTIONS (3)
  - ACUTE RESPIRATORY FAILURE [None]
  - PNEUMONIA [None]
  - PULMONARY HAEMORRHAGE [None]
